FAERS Safety Report 5475885-0 (Version None)
Quarter: 2007Q4

REPORT INFORMATION
  Report Type: 
  Country: None (occurrence: None)
  Receive Date: 20071003
  Receipt Date: 20070921
  Transmission Date: 20080405
  Serious: Yes (Death)
  Sender: FDA-Public Use
  Company Number: DE-BRISTOL-MYERS SQUIBB COMPANY-13925672

PATIENT
  Sex: Male

DRUGS (5)
  1. ETOPOSIDE [Suspect]
     Indication: GERM CELL CANCER
     Dosage: 75 MG/M2 EVERY DAY.
  2. IFOSFAMIDE [Suspect]
     Indication: GERM CELL CANCER
  3. CYCLOPHOSPHAMIDE [Suspect]
     Indication: GERM CELL CANCER
  4. CISPLATIN [Suspect]
     Indication: GERM CELL CANCER
  5. CARBOPLATIN [Suspect]
     Indication: GERM CELL CANCER

REACTIONS (1)
  - HAEMORRHAGE [None]
